FAERS Safety Report 7900396 (Version 3)
Quarter: 2013Q4

REPORT INFORMATION
  Report Type: Spontaneous
  Country: NL (occurrence: NL)
  Receive Date: 20110415
  Receipt Date: 20131011
  Transmission Date: 20140711
  Serious: Yes (Death, Life-Threatening, Hospitalization, Disabling, Other)
  Sender: FDA-Public Use
  Company Number: NL-SANOFI-AVENTIS-2011SA022146

PATIENT
  Age: 81 Year
  Sex: Male
  Weight: 78 kg

DRUGS (13)
  1. PLAVIX [Suspect]
     Indication: ACUTE CORONARY SYNDROME
     Dates: start: 20110130, end: 20110130
  2. PLAVIX [Suspect]
     Indication: ACUTE CORONARY SYNDROME
     Route: 048
     Dates: start: 20110131, end: 20110318
  3. BIVALIRUDIN [Suspect]
     Indication: PERCUTANEOUS CORONARY INTERVENTION
     Dosage: BOLUS
     Route: 051
     Dates: start: 20110130, end: 20110130
  4. BIVALIRUDIN [Suspect]
     Indication: PERCUTANEOUS CORONARY INTERVENTION
     Dosage: BOLUS
     Route: 051
     Dates: start: 20110130, end: 20110130
  5. BIVALIRUDIN [Suspect]
     Indication: PERCUTANEOUS CORONARY INTERVENTION
     Dosage: BOLUS
     Route: 051
     Dates: start: 20110130, end: 20110131
  6. ASPIRIN [Suspect]
     Indication: ACUTE CORONARY SYNDROME
     Dosage: INITIAL DOSE }162MG
     Dates: start: 20110130, end: 20110130
  7. ASPIRIN [Suspect]
     Indication: ACUTE CORONARY SYNDROME
     Dosage: MAINTENENCE DOSE {=100MG
     Dates: start: 20110130, end: 20110130
  8. ASPIRIN [Suspect]
     Indication: ACUTE CORONARY SYNDROME
     Dosage: MAINTENENCE DOSE {=100MG
     Route: 048
     Dates: start: 20110131, end: 20110318
  9. DIPYRIDAMOLE [Suspect]
     Indication: CEREBROVASCULAR ACCIDENT
     Route: 048
  10. PRAVASTATIN [Concomitant]
  11. FLUTICASONE/SALMETEROL [Concomitant]
  12. SALBUTAMOL [Concomitant]
  13. METOPROLOL [Concomitant]

REACTIONS (12)
  - Gastrointestinal injury [Fatal]
  - Aortic aneurysm rupture [Fatal]
  - Prescribed overdose [Fatal]
  - Haemoglobin decreased [Fatal]
  - Intestinal ischaemia [Fatal]
  - Multi-organ failure [Fatal]
  - Blood creatinine increased [Fatal]
  - Haemodynamic instability [Fatal]
  - Pneumonia [Fatal]
  - Cystitis [Fatal]
  - Critical illness polyneuropathy [Fatal]
  - Peritoneal haemorrhage [Fatal]
